FAERS Safety Report 8037827-3 (Version None)
Quarter: 2012Q1

REPORT INFORMATION
  Report Type: 
  Country: None (occurrence: None)
  Receive Date: 20120111
  Receipt Date: 20120103
  Transmission Date: 20120608
  Serious: Yes (Other)
  Sender: FDA-Public Use
  Company Number: PHHY2011FR098571

PATIENT
  Sex: Female
  Weight: 71 kg

DRUGS (4)
  1. METFORMIN HCL [Suspect]
     Indication: DIABETES MELLITUS
     Dosage: 850 MG, BID
     Dates: start: 20030101
  2. SIMVASTATIN [Suspect]
     Indication: DIABETES MELLITUS
     Dosage: 20 MG, QD
     Dates: start: 20030101
  3. CLOZAPINE [Suspect]
     Indication: BIPOLAR DISORDER
     Dosage: 100 MG, BID
     Route: 048
     Dates: start: 20010101
  4. CLOZAPINE [Suspect]
     Dosage: 200 MG, QD

REACTIONS (6)
  - DYSURIA [None]
  - HYPERCHOLESTEROLAEMIA [None]
  - DIARRHOEA [None]
  - DIABETES MELLITUS [None]
  - URINARY TRACT INFECTION [None]
  - CONSTIPATION [None]
